FAERS Safety Report 7562044-0 (Version None)
Quarter: 2011Q2

REPORT INFORMATION
  Report Type: 
  Country: None (occurrence: None)
  Receive Date: 20110622
  Receipt Date: 20090429
  Transmission Date: 20111010
  Serious: Yes (Death, Hospitalization)
  Sender: FDA-Public Use
  Company Number: PHHY2009DE68665

PATIENT
  Age: 55 Year
  Sex: Male
  Weight: 56 kg

DRUGS (9)
  1. EFFERVESCENT POTASSIUM CHLOR TABLETS BP 2001 [Concomitant]
  2. SANDOSTATIN LAR [Suspect]
     Indication: NEUROENDOCRINE TUMOUR
     Dosage: 10 MG, UNK
     Route: 030
     Dates: start: 20090429
  3. CALCIUM CARBONATE [Concomitant]
  4. OMEPRAZOLE [Concomitant]
  5. SPIRONOLACTONE [Concomitant]
  6. HEPARIN [Concomitant]
  7. FUROSEMIDE [Concomitant]
  8. SUCRALFATE [Concomitant]
  9. LEVOFLOXACIN [Concomitant]

REACTIONS (2)
  - TERMINAL STATE [None]
  - NAUSEA [None]
